FAERS Safety Report 13619828 (Version 1)
Quarter: 2017Q2

REPORT INFORMATION
  Report Type: Spontaneous
  Country: None (occurrence: US)
  Receive Date: 20170606
  Receipt Date: 20170606
  Transmission Date: 20170830
  Serious: No
  Sender: FDA-Public Use
  Company Number: None

PATIENT
  Age: 47 Year
  Sex: Female

DRUGS (1)
  1. CLINDAMYCIN PHOSPHATE. [Suspect]
     Active Substance: CLINDAMYCIN PHOSPHATE
     Indication: LYME DISEASE
     Route: 042
     Dates: start: 20170523, end: 20170605

REACTIONS (1)
  - Jarisch-Herxheimer reaction [None]

NARRATIVE: CASE EVENT DATE: 20170605
